FAERS Safety Report 9809669 (Version 3)
Quarter: 2014Q4

REPORT INFORMATION
  Report Type: Spontaneous
  Country: US (occurrence: US)
  Receive Date: 20140110
  Receipt Date: 20141229
  Transmission Date: 20150529
  Serious: Yes (Other)
  Sender: FDA-Public Use
  Company Number: US-SANOFI-AVENTIS-2012SA040480

PATIENT
  Age: 47 Year
  Sex: Male

DRUGS (4)
  1. PLAVIX [Suspect]
     Active Substance: CLOPIDOGREL BISULFATE
     Indication: STENT PLACEMENT
     Route: 065
     Dates: start: 2007, end: 20100617
  2. PLAVIX [Suspect]
     Active Substance: CLOPIDOGREL BISULFATE
     Indication: CORONARY ARTERIAL STENT INSERTION
     Route: 065
     Dates: start: 2007, end: 20100617
  3. PLAVIX [Suspect]
     Active Substance: CLOPIDOGREL BISULFATE
     Indication: PERIPHERAL ARTERIAL OCCLUSIVE DISEASE
     Route: 065
     Dates: start: 2007, end: 20100617
  4. ASPIRIN. [Suspect]
     Active Substance: ASPIRIN
     Route: 065

REACTIONS (13)
  - Coma [Unknown]
  - Balance disorder [Unknown]
  - Depression [Unknown]
  - Impaired work ability [Unknown]
  - Hypoaesthesia [Unknown]
  - Thrombotic thrombocytopenic purpura [Unknown]
  - Subarachnoid haemorrhage [Unknown]
  - Insomnia [Unknown]
  - Cerebral haemorrhage [Unknown]
  - Personality change [Unknown]
  - Cerebral haemorrhage [Unknown]
  - Amnesia [Unknown]
  - Libido decreased [Unknown]

NARRATIVE: CASE EVENT DATE: 2007
